FAERS Safety Report 10424545 (Version 1)
Quarter: 2014Q3

REPORT INFORMATION
  Report Type: Report from Study
  Country: MX (occurrence: MX)
  Receive Date: 20140902
  Receipt Date: 20140902
  Transmission Date: 20150326
  Serious: Yes (Death)
  Sender: FDA-Public Use
  Company Number: PHHY2014MX110354

PATIENT
  Age: 88 Year
  Sex: Female

DRUGS (3)
  1. CO-DIOVAN [Suspect]
     Active Substance: HYDROCHLOROTHIAZIDE\VALSARTAN
     Indication: HYPERTENSION
     Dosage: 1 DF(80/12.5MG), DAILY
     Route: 048
     Dates: start: 1999, end: 2014
  2. EXELON PATCH [Suspect]
     Active Substance: RIVASTIGMINE
     Dosage: 1 UKN, DAILY
     Route: 062
     Dates: start: 2011, end: 201310
  3. SEROQUEL [Concomitant]
     Active Substance: QUETIAPINE FUMARATE
     Indication: OBSESSIVE THOUGHTS
     Dosage: 1 UKN, DAILY
     Dates: start: 2011, end: 201310

REACTIONS (3)
  - Cardiac arrest [Fatal]
  - Blood disorder [Fatal]
  - Renal failure [Fatal]

NARRATIVE: CASE EVENT DATE: 20140205
